FAERS Safety Report 24451667 (Version 1)
Quarter: 2024Q4

REPORT INFORMATION
  Report Type: Spontaneous
  Country: US (occurrence: None)
  Receive Date: 20241017
  Receipt Date: 20241017
  Transmission Date: 20250115
  Serious: Yes (Other)
  Sender: Public
  Company Number: None

PATIENT
  Age: 70 Year
  Sex: Male
  Weight: 91.8 kg

DRUGS (2)
  1. WELLBUTRIN [Suspect]
     Active Substance: BUPROPION HYDROCHLORIDE
     Indication: Major depression
     Dosage: FREQUENCY : DAILY;?
     Route: 048
     Dates: start: 20240329, end: 20240920
  2. Meloxicam PRN [Concomitant]
     Dates: start: 20210101

REACTIONS (8)
  - Memory impairment [None]
  - Gait disturbance [None]
  - Cognitive disorder [None]
  - Fatigue [None]
  - Therapy cessation [None]
  - Pain in extremity [None]
  - Muscular weakness [None]
  - Balance disorder [None]

NARRATIVE: CASE EVENT DATE: 20240815
